FAERS Safety Report 20751078 (Version 2)
Quarter: 2022Q2

REPORT INFORMATION
  Report Type: Report from Study
  Country: CA (occurrence: CA)
  Receive Date: 20220426
  Receipt Date: 20220623
  Transmission Date: 20220720
  Serious: Yes (Hospitalization)
  Sender: FDA-Public Use
  Company Number: CA-JNJFOC-20220326166

PATIENT
  Age: 28 Year
  Sex: Female
  Weight: 56 kg

DRUGS (4)
  1. REMICADE [Suspect]
     Active Substance: INFLIXIMAB
     Indication: Colitis ulcerative
     Route: 042
     Dates: start: 20220303
  2. REMICADE [Suspect]
     Active Substance: INFLIXIMAB
     Dosage: 3RD INFUSION ON 30-MAR-2022. PHYSICIAN WANTED TO CHANGE TO 600 MG EVERY 4 WEEKS MOVING FORWARD
     Route: 042
     Dates: start: 20220330
  3. REMICADE [Suspect]
     Active Substance: INFLIXIMAB
     Dosage: STAT DOSE?ON 11-APR-2022, THE PATIENT COMPLETED 5 TREATMENTS
     Route: 042
     Dates: start: 2022
  4. REMICADE [Suspect]
     Active Substance: INFLIXIMAB
     Route: 042
     Dates: start: 2022

REACTIONS (5)
  - Clostridium difficile infection [Unknown]
  - Hospitalisation [Unknown]
  - Colitis ulcerative [Recovering/Resolving]
  - Hypotension [Recovered/Resolved]
  - Off label use [Unknown]

NARRATIVE: CASE EVENT DATE: 20220303
